FAERS Safety Report 5957557-9 (Version None)
Quarter: 2008Q4

REPORT INFORMATION
  Report Type: 
  Country: None (occurrence: None)
  Receive Date: 20081117
  Receipt Date: 20081117
  Transmission Date: 20090506
  Serious: Yes (Hospitalization, Disabling)
  Sender: FDA-Public Use
  Company Number: None

PATIENT
  Sex: Male
  Weight: 90.7194 kg

DRUGS (45)
  1. LEVOTHYROXINE SODIUM [Suspect]
  2. CYCLOBENZAPRINE HCL [Suspect]
  3. BAYCOL [Concomitant]
  4. VIOXX [Concomitant]
  5. INDERAL [Concomitant]
  6. RELAFEN [Concomitant]
  7. ELAVIL [Concomitant]
  8. NEURONTIN [Concomitant]
  9. DOXYCYCLINE [Concomitant]
  10. PREDNISONE [Concomitant]
  11. ZETIA [Concomitant]
  12. PYRDIUM [Concomitant]
  13. WELCHOL [Concomitant]
  14. NITROGLYCERIN [Concomitant]
  15. VOLTAREN [Concomitant]
  16. LIPITOR [Concomitant]
  17. ANTIVERT [Concomitant]
  18. RANITIDINE [Concomitant]
  19. IBUPROFEN [Concomitant]
  20. ZELNORM [Concomitant]
  21. FLEXERIL [Concomitant]
  22. ULTRAM [Concomitant]
  23. TRICOR [Concomitant]
  24. TYLENOL (CAPLET) [Concomitant]
  25. VICODIN [Concomitant]
  26. NEXIUM [Concomitant]
  27. LYRICA [Concomitant]
  28. CYMBALTA [Concomitant]
  29. PIROXICAM [Concomitant]
  30. DARVOCET [Concomitant]
  31. TOPAMAX [Concomitant]
  32. AUGMENTIN [Concomitant]
  33. TRIMOX [Concomitant]
  34. ENTEX CAP [Concomitant]
  35. DURATUSS [Concomitant]
  36. METOPROLOL [Concomitant]
  37. SOMA [Concomitant]
  38. DAYPRO [Concomitant]
  39. NAPROXEN [Concomitant]
  40. SKELAXIN [Concomitant]
  41. OXYCODON [Concomitant]
  42. CORGARD [Concomitant]
  43. REGLAN [Concomitant]
  44. PAMELOR [Concomitant]
  45. NIASPAN [Concomitant]

REACTIONS (4)
  - HEADACHE [None]
  - MYALGIA [None]
  - NAUSEA [None]
  - TINNITUS [None]
